FAERS Safety Report 6290926-9 (Version None)
Quarter: 2009Q3

REPORT INFORMATION
  Report Type: 
  Country: None (occurrence: None)
  Receive Date: 20090729
  Receipt Date: 20090729
  Transmission Date: 20100115
  Serious: Yes (Hospitalization, Disabling)
  Sender: FDA-Public Use
  Company Number: None

PATIENT
  Age: 25 Year
  Sex: Female
  Weight: 49.8957 kg

DRUGS (2)
  1. NUVARING [Suspect]
     Indication: CONTRACEPTION
     Dosage: ONE RING, PER 3 WEEKS, VAG
     Route: 067
     Dates: start: 20090628, end: 20090718
  2. ZOLOFT [Concomitant]

REACTIONS (10)
  - ATRIAL SEPTAL DEFECT [None]
  - CENTRAL NERVOUS SYSTEM LESION [None]
  - CEREBROVASCULAR ACCIDENT [None]
  - EYE PAIN [None]
  - HYPERCOAGULATION [None]
  - HYPOAESTHESIA FACIAL [None]
  - MIGRAINE [None]
  - MULTIPLE SCLEROSIS [None]
  - NAUSEA [None]
  - VOMITING [None]
